FAERS Safety Report 8025948-0 (Version None)
Quarter: 2012Q1

REPORT INFORMATION
  Report Type: 
  Country: None (occurrence: None)
  Receive Date: 20120105
  Receipt Date: 20110913
  Transmission Date: 20120608
  Serious: No
  Sender: FDA-Public Use
  Company Number: US-ABBOTT-11P-163-0854487-00

PATIENT
  Age: 47 Year
  Sex: Male

DRUGS (3)
  1. SYNTHROID [Suspect]
     Dates: start: 20110901
  2. SYNTHROID [Suspect]
     Indication: HYPOTHYROIDISM
     Dates: start: 20110701, end: 20110801
  3. SYNTHROID [Suspect]
     Dates: start: 20110801, end: 20110901

REACTIONS (3)
  - MYALGIA [None]
  - MUSCULAR WEAKNESS [None]
  - NERVOUSNESS [None]
